FAERS Safety Report 8071064-1 (Version None)
Quarter: 2012Q1

REPORT INFORMATION
  Report Type: 
  Country: None (occurrence: None)
  Receive Date: 20120125
  Receipt Date: 20120118
  Transmission Date: 20120608
  Serious: Yes (Other)
  Sender: FDA-Public Use
  Company Number: US-PFIZER INC-2012015372

PATIENT
  Sex: Female

DRUGS (12)
  1. HYDROCHLOROTHIAZIDE [Concomitant]
     Dosage: UNK
  2. MELOXICAM [Concomitant]
     Dosage: UNK
  3. NAMENDA [Concomitant]
     Dosage: UNK
  4. PRAVASTATIN [Concomitant]
     Dosage: UNK
  5. TYLENOL W/ CODEINE NO. 3 [Concomitant]
     Dosage: UNK
  6. ACETYLSALICYLIC ACID [Concomitant]
     Dosage: UNK
  7. ALENDRONATE SODIUM [Concomitant]
     Dosage: UNK
  8. LISINOPRIL [Concomitant]
     Dosage: UNK
  9. EXELON [Concomitant]
     Dosage: UNK
  10. VERAPAMIL [Concomitant]
     Dosage: UNK
  11. LYRICA [Suspect]
     Dosage: 50 MG, 1X/DAY AT BEDTIME
  12. CALCIUM [Concomitant]
     Dosage: UNK

REACTIONS (1)
  - DEMENTIA ALZHEIMER'S TYPE [None]
